FAERS Safety Report 13786509 (Version 1)
Quarter: 2017Q3

REPORT INFORMATION
  Report Type: Spontaneous
  Country: US (occurrence: US)
  Receive Date: 20170725
  Receipt Date: 20170725
  Transmission Date: 20171127
  Serious: No
  Sender: FDA-Public Use
  Company Number: None

PATIENT

DRUGS (1)
  1. MANNITOL. [Suspect]
     Active Substance: MANNITOL
     Dosage: 500ML  IV BAG?INJECTABLE INJECTION 20%
     Route: 042

REACTIONS (2)
  - Product label confusion [None]
  - Underdose [None]
